FAERS Safety Report 14444947 (Version 6)
Quarter: 2019Q3

REPORT INFORMATION
  Report Type: Report from Study
  Country: DE (occurrence: DE)
  Receive Date: 20180126
  Receipt Date: 20190719
  Transmission Date: 20191004
  Serious: Yes (Hospitalization, Other)
  Sender: FDA-Public Use
  Company Number: DE-SA-2018SA016011

PATIENT
  Age: 24 Year
  Sex: Female

DRUGS (2)
  1. ALEMTUZUMAB [Suspect]
     Active Substance: ALEMTUZUMAB
     Indication: MULTIPLE SCLEROSIS
     Dosage: 12 MG,QD
     Route: 041
     Dates: start: 20180108, end: 20180112
  2. IRON [Concomitant]
     Active Substance: IRON
     Indication: IRON DEFICIENCY
     Dosage: UNK
     Route: 048

REACTIONS (12)
  - Menstruation delayed [Unknown]
  - Hypoaesthesia [Unknown]
  - Hyperventilation [Unknown]
  - Melanocytic naevus [Unknown]
  - Blood iron decreased [Unknown]
  - Drug exposure before pregnancy [Unknown]
  - Dyspnoea [Unknown]
  - Pyrexia [Recovered/Resolved]
  - Alopecia [Not Recovered/Not Resolved]
  - Arthralgia [Recovered/Resolved]
  - Stress [Not Recovered/Not Resolved]
  - Suppressed lactation [Unknown]

NARRATIVE: CASE EVENT DATE: 2018
